FAERS Safety Report 8224391-9 (Version None)
Quarter: 2012Q1

REPORT INFORMATION
  Report Type: 
  Country: None (occurrence: None)
  Receive Date: 20120319
  Receipt Date: 20120306
  Transmission Date: 20120608
  Serious: Yes (Hospitalization)
  Sender: FDA-Public Use
  Company Number: UTC-016353

PATIENT
  Age: 81 Year
  Sex: Male
  Weight: 82.7 kg

DRUGS (5)
  1. DIURETICS (DIURETICS) [Concomitant]
  2. TRACLEER [Concomitant]
  3. COUMADIN [Concomitant]
  4. PLAVIX [Concomitant]
  5. TYVASO [Suspect]
     Indication: PULMONARY ARTERIAL HYPERTENSION
     Dosage: INHALATION
     Route: 055
     Dates: start: 20111221

REACTIONS (3)
  - DYSPNOEA [None]
  - FLUID RETENTION [None]
  - CHEST PAIN [None]
